FAERS Safety Report 8525053-0 (Version None)
Quarter: 2012Q3

REPORT INFORMATION
  Report Type: 
  Country: None (occurrence: None)
  Receive Date: 20120720
  Receipt Date: 20120718
  Transmission Date: 20120928
  Serious: Yes (Life-Threatening)
  Sender: FDA-Public Use
  Company Number: IT-ROCHE-1080203

PATIENT
  Sex: Female

DRUGS (6)
  1. FLUOXETINE HCL [Concomitant]
     Indication: DEPRESSION
     Dosage: DRUG REPORTED AS : FLUOXETINA CLORIDRATO
     Route: 048
  2. CLONAZEPAM [Suspect]
     Indication: INTENTIONAL OVERDOSE
     Dosage: 30 GTT
     Route: 048
     Dates: start: 20120616, end: 20120616
  3. SIMVASTATIN [Concomitant]
     Route: 048
  4. FLURAZEPAM HYDROCHLORIDE [Concomitant]
     Route: 048
  5. NEBIVOLOL [Concomitant]
     Route: 048
  6. RAMIPRIL [Concomitant]

REACTIONS (2)
  - SOPOR [None]
  - RESPIRATORY ACIDOSIS [None]
